FAERS Safety Report 22117491 (Version 2)
Quarter: 2023Q1

REPORT INFORMATION
  Report Type: Spontaneous
  Country: BE (occurrence: None)
  Receive Date: 20230321
  Receipt Date: 20230327
  Transmission Date: 20230418
  Serious: Yes (Other)
  Sender: FDA-Public Use
  Company Number: BE-ROCHE-3308766

PATIENT
  Sex: Female

DRUGS (3)
  1. HERCEPTIN [Suspect]
     Active Substance: TRASTUZUMAB
     Indication: HER2 positive breast cancer
     Dosage: RECEIVED 6 CYCLES OF TRASTUZUMAB - PERTUZUMAB. ADJUVANT THERAPY CONTINUED (09/03/23 PATIENT RECEIVED
     Route: 065
  2. PERTUZUMAB [Suspect]
     Active Substance: PERTUZUMAB
     Indication: HER2 positive breast cancer
     Dosage: RECEIVED 6 CYCLES OF TRASTUZUMAB-PERTUZUMAB. ADJUVANT THERAPY CONTINUED (09/03/23 PATIENT RECEIVED C
     Route: 065
  3. TAXOL [Suspect]
     Active Substance: PACLITAXEL
     Indication: HER2 positive breast cancer
     Dosage: ON CYCLE 8 OF TAXOL
     Route: 065

REACTIONS (2)
  - Mitral valve incompetence [Unknown]
  - Aortic valve sclerosis [Unknown]
